FAERS Safety Report 6479487-9 (Version None)
Quarter: 2009Q4

REPORT INFORMATION
  Report Type: 
  Country: None (occurrence: None)
  Receive Date: 20091208
  Receipt Date: 20091125
  Transmission Date: 20100525
  Serious: Yes (Hospitalization)
  Sender: FDA-Public Use
  Company Number: FR-RANBAXY-2009RR-29482

PATIENT
  Age: 45 Year
  Sex: Male

DRUGS (2)
  1. METFORMIN HCL [Suspect]
  2. LITHIUM [Suspect]

REACTIONS (2)
  - LACTIC ACIDOSIS [None]
  - THERAPEUTIC AGENT TOXICITY [None]
